FAERS Safety Report 20350975 (Version 4)
Quarter: 2022Q3

REPORT INFORMATION
  Report Type: Report from Study
  Country: EG (occurrence: EG)
  Receive Date: 20220119
  Receipt Date: 20220624
  Transmission Date: 20221027
  Serious: Yes (Other)
  Sender: FDA-Public Use
  Company Number: EG-NOVARTISPH-NVSC2022EG007623

PATIENT
  Age: 26 Year
  Sex: Male

DRUGS (2)
  1. HYRIMOZ [Suspect]
     Active Substance: ADALIMUMAB-ADAZ
     Indication: Ankylosing spondylitis
     Dosage: 40 MG, Q2W (1 PREFILLED PEN)
     Route: 058
     Dates: start: 20220109
  2. PEPZOL [Concomitant]
     Indication: Prophylaxis
     Dosage: 1 DOSAGE FORM, QD (ON EMPTY STOMACH)
     Route: 065
     Dates: start: 20220109

REACTIONS (9)
  - Movement disorder [Recovering/Resolving]
  - Pain [Recovering/Resolving]
  - Fatigue [Recovering/Resolving]
  - Back pain [Recovering/Resolving]
  - Pain in extremity [Recovering/Resolving]
  - Poor quality sleep [Recovering/Resolving]
  - Red blood cell sedimentation rate increased [Unknown]
  - Feeling abnormal [Unknown]
  - Drug ineffective [Unknown]

NARRATIVE: CASE EVENT DATE: 20220110
